FAERS Safety Report 13882228 (Version 1)
Quarter: 2017Q3

REPORT INFORMATION
  Report Type: Spontaneous
  Country: CN (occurrence: CN)
  Receive Date: 20170818
  Receipt Date: 20170818
  Transmission Date: 20171127
  Serious: Yes (Hospitalization)
  Sender: FDA-Public Use
  Company Number: CN-009507513-1708CHN007478

PATIENT
  Age: 3 Year
  Sex: Female

DRUGS (4)
  1. SINGULAIR [Suspect]
     Active Substance: MONTELUKAST SODIUM
     Indication: NASAL MUCOSAL HYPERTROPHY
     Dosage: ONCE A DAY
     Route: 048
     Dates: start: 20170701, end: 20170704
  2. NASONEX [Suspect]
     Active Substance: MOMETASONE FUROATE
     Indication: NASAL MUCOSAL HYPERTROPHY
     Dosage: UNILATERAL NOSTRIL ONCE A PRESS.ONCE A DAY
     Route: 045
     Dates: start: 20170701, end: 20170704
  3. NASONEX [Suspect]
     Active Substance: MOMETASONE FUROATE
     Dosage: UNILATERAL NOSTRIL ONCE A PRESS.ONCE A DAY
     Route: 045
     Dates: start: 20170811, end: 20170814
  4. SINGULAIR [Suspect]
     Active Substance: MONTELUKAST SODIUM
     Dosage: ONCE A DAY
     Route: 048
     Dates: start: 20170811, end: 20170814

REACTIONS (3)
  - Off label use [Unknown]
  - Pyrexia [Recovered/Resolved]
  - Pyrexia [Not Recovered/Not Resolved]

NARRATIVE: CASE EVENT DATE: 20170701
